FAERS Safety Report 8476705-2 (Version None)
Quarter: 2012Q2

REPORT INFORMATION
  Report Type: 
  Country: None (occurrence: None)
  Receive Date: 20120628
  Receipt Date: 20120618
  Transmission Date: 20120825
  Serious: Yes (Hospitalization)
  Sender: FDA-Public Use
  Company Number: ES-ABBOTT-12P-144-0946921-00

PATIENT
  Sex: Male

DRUGS (5)
  1. REMICADE [Concomitant]
     Indication: CROHN'S DISEASE
  2. HUMIRA [Suspect]
     Route: 058
     Dates: end: 20100510
  3. MERCAPTOPURINE [Concomitant]
     Indication: CROHN'S DISEASE
  4. HUMIRA [Suspect]
     Indication: CROHN'S DISEASE
     Route: 058
     Dates: start: 20090604, end: 20090604
  5. HUMIRA [Suspect]
     Route: 058

REACTIONS (1)
  - TOXICITY TO VARIOUS AGENTS [None]
